FAERS Safety Report 21591132 (Version 1)
Quarter: 2022Q4

REPORT INFORMATION
  Report Type: Spontaneous
  Country: US (occurrence: US)
  Receive Date: 20221114
  Receipt Date: 20221114
  Transmission Date: 20230112
  Serious: No
  Sender: FDA-Public Use
  Company Number: US-SA-SAC20221111001711

PATIENT
  Age: 61 Year
  Sex: Male

DRUGS (13)
  1. DUPIXENT [Suspect]
     Active Substance: DUPILUMAB
     Indication: Asthma
     Dosage: 300 MG, QOW
     Route: 058
     Dates: start: 20220414
  2. ADVAIR HFA [Concomitant]
     Active Substance: FLUTICASONE PROPIONATE\SALMETEROL XINAFOATE
  3. ALFUZOSIN HYDROCHLORIDE [Concomitant]
     Active Substance: ALFUZOSIN HYDROCHLORIDE
     Dosage: 10MG
  4. ALLOPURINOL [Concomitant]
     Active Substance: ALLOPURINOL
  5. ALVESCO [Concomitant]
     Active Substance: CICLESONIDE
  6. AZELASTINE [Concomitant]
     Active Substance: AZELASTINE
  7. BREO ELLIPTA [Concomitant]
     Active Substance: FLUTICASONE FUROATE\VILANTEROL TRIFENATATE
  8. CEFUROXIME [Concomitant]
     Active Substance: CEFUROXIME
  9. FINASTERIDE [Concomitant]
     Active Substance: FINASTERIDE
  10. FLONASE [Concomitant]
     Active Substance: FLUTICASONE PROPIONATE
  11. LORAZEPAM [Concomitant]
     Active Substance: LORAZEPAM
  12. LOSARTAN POTASSIUM [Concomitant]
     Active Substance: LOSARTAN POTASSIUM
  13. PROTONIX [Concomitant]
     Active Substance: PANTOPRAZOLE SODIUM

REACTIONS (1)
  - Drug ineffective [Unknown]

NARRATIVE: CASE EVENT DATE: 20220101
